FAERS Safety Report 6425781-7 (Version None)
Quarter: 2009Q4

REPORT INFORMATION
  Report Type: 
  Country: None (occurrence: None)
  Receive Date: 20091103
  Receipt Date: 20091029
  Transmission Date: 20100525
  Serious: Yes (Other)
  Sender: FDA-Public Use
  Company Number: US-MERCK-0907USA04621

PATIENT
  Age: 45 Year
  Sex: Female
  Weight: 66 kg

DRUGS (4)
  1. PRINIVIL [Suspect]
     Route: 048
     Dates: start: 19890619, end: 20090401
  2. PRINIVIL [Suspect]
     Route: 048
     Dates: start: 20090101
  3. CRESTOR [Concomitant]
     Route: 065
  4. XANAX [Concomitant]
     Route: 065

REACTIONS (5)
  - ADVERSE EVENT [None]
  - DEAFNESS [None]
  - DIZZINESS [None]
  - OEDEMA [None]
  - WEIGHT INCREASED [None]
